FAERS Safety Report 8732460 (Version 3)
Quarter: 2012Q4

REPORT INFORMATION
  Report Type: Report from Study
  Country: US (occurrence: US)
  Receive Date: 20120820
  Receipt Date: 20120830
  Transmission Date: 20130627
  Serious: Yes (Other)
  Sender: FDA-Public Use
  Company Number: US-ABBOTT-12P-163-0967682-00

PATIENT
  Age: 39 Year
  Sex: Female

DRUGS (14)
  1. HUMIRA 40 MG/ 0.8 ML PRE-FILLED SYRINGE [Suspect]
     Indication: RHEUMATOID ARTHRITIS
     Dates: start: 2006, end: 2007
  2. HUMIRA 40 MG/ 0.8 ML PRE-FILLED SYRINGE [Suspect]
     Dates: start: 200708, end: 200812
  3. HUMIRA 40 MG/ 0.8 ML PRE-FILLED SYRINGE [Suspect]
     Dates: start: 200908
  4. METHOTREXATE [Suspect]
     Indication: PRODUCT USED FOR UNKNOWN INDICATION
  5. METHOTREXATE [Suspect]
     Dates: end: 20120810
  6. BCP [Concomitant]
     Indication: PRODUCT USED FOR UNKNOWN INDICATION
  7. NASONEX [Concomitant]
     Indication: HYPERSENSITIVITY
  8. ZYRTEC [Concomitant]
     Indication: HYPERSENSITIVITY
  9. GENERIC FOR PRILOSEC [Concomitant]
     Indication: PRODUCT USED FOR UNKNOWN INDICATION
     Dosage: Daily
     Route: 048
  10. ALBUTEROL INHALER [Concomitant]
     Indication: ASTHMA
  11. SEMAR [Concomitant]
     Indication: OVARIAN DISORDER
  12. HORMONE INJECTIONS [Concomitant]
     Indication: INFERTILITY
  13. METHOTREXATE [Concomitant]
     Indication: PRODUCT USED FOR UNKNOWN INDICATION
  14. PREDNISONE [Concomitant]
     Indication: PRODUCT USED FOR UNKNOWN INDICATION

REACTIONS (21)
  - Amniotic fluid volume decreased [Recovered/Resolved]
  - Injection site pain [Unknown]
  - Drug effect decreased [Unknown]
  - Adverse drug reaction [Unknown]
  - Drug effect decreased [Unknown]
  - Malaise [Unknown]
  - Lung disorder [Unknown]
  - Arthralgia [Unknown]
  - Joint stiffness [Unknown]
  - Injection site bruising [Unknown]
  - Injection site induration [Unknown]
  - Injection site pain [Unknown]
  - Wrong technique in drug usage process [Unknown]
  - Incorrect route of drug administration [Unknown]
  - Infertility [Unknown]
  - Premature rupture of membranes [Recovered/Resolved]
  - Hormone level abnormal [Recovered/Resolved]
  - Rheumatoid arthritis [Recovered/Resolved]
  - False positive investigation result [Recovered/Resolved]
  - Breech presentation [Recovered/Resolved]
  - Umbilical cord around neck [Recovered/Resolved]
